FAERS Safety Report 12873244 (Version 2)
Quarter: 2016Q4

REPORT INFORMATION
  Report Type: Report from Study
  Country: US (occurrence: US)
  Receive Date: 20161021
  Receipt Date: 20161128
  Transmission Date: 20170207
  Serious: No
  Sender: FDA-Public Use
  Company Number: US-AMGEN-USASL2016141871

PATIENT
  Age: 53 Year
  Sex: Female

DRUGS (1)
  1. ENBREL [Suspect]
     Active Substance: ETANERCEPT
     Indication: RHEUMATOID ARTHRITIS
     Dosage: 50 MG, QWK
     Route: 065

REACTIONS (12)
  - Pain [Unknown]
  - Nasal congestion [Unknown]
  - Ear congestion [Unknown]
  - Ear pain [Unknown]
  - Oropharyngeal pain [Unknown]
  - Ear disorder [Unknown]
  - Drug effect incomplete [Unknown]
  - Rash pustular [Unknown]
  - Body temperature abnormal [Unknown]
  - Nasal dryness [Unknown]
  - Epistaxis [Unknown]
  - Musculoskeletal stiffness [Unknown]

NARRATIVE: CASE EVENT DATE: 20161011
